FAERS Safety Report 21434623 (Version 3)
Quarter: 2022Q4

REPORT INFORMATION
  Report Type: Report from Study
  Country: US (occurrence: US)
  Receive Date: 20221010
  Receipt Date: 20221103
  Transmission Date: 20230113
  Serious: Yes (Other)
  Sender: FDA-Public Use
  Company Number: US-EXELIXIS-CABO-22053881

PATIENT
  Sex: Male
  Weight: 112.79 kg

DRUGS (1)
  1. CABOMETYX [Suspect]
     Active Substance: CABOZANTINIB S-MALATE
     Indication: Renal cancer
     Dosage: 40 MG, QD
     Route: 048
     Dates: start: 20201026

REACTIONS (8)
  - Cerebral disorder [Unknown]
  - Pulmonary embolism [Unknown]
  - Adverse drug reaction [Unknown]
  - Abdominal discomfort [Unknown]
  - Headache [Unknown]
  - Weight decreased [Unknown]
  - Fatigue [Unknown]
  - Diarrhoea [Unknown]
